FAERS Safety Report 9058452 (Version 8)
Quarter: 2013Q2

REPORT INFORMATION
  Report Type: Spontaneous
  Country: US (occurrence: US)
  Receive Date: 20130131
  Receipt Date: 20130604
  Transmission Date: 20140414
  Serious: Yes (Other)
  Sender: FDA-Public Use
  Company Number: US-CELGENEUS-163-21880-12121379

PATIENT
  Age: 74 Year
  Sex: Male
  Weight: 96.5 kg

DRUGS (43)
  1. REVLIMID [Suspect]
     Indication: PLASMA CELL MYELOMA
     Route: 048
     Dates: start: 20120816
  2. DEXAMETHASONE [Suspect]
     Indication: PLASMA CELL MYELOMA
     Route: 048
     Dates: start: 20120816
  3. ELOTUZUMAB [Suspect]
     Indication: PLASMA CELL MYELOMA
     Route: 041
     Dates: start: 20120817
  4. ATENOLOL [Concomitant]
     Indication: PRODUCT USED FOR UNKNOWN INDICATION
     Route: 065
     Dates: start: 20000501, end: 20130510
  5. ASPIRIN [Concomitant]
     Indication: PRODUCT USED FOR UNKNOWN INDICATION
     Route: 065
     Dates: start: 20000601
  6. WARFARIN [Concomitant]
     Indication: PRODUCT USED FOR UNKNOWN INDICATION
     Route: 065
     Dates: start: 20000620
  7. CENTRUM SILVER [Concomitant]
     Indication: PRODUCT USED FOR UNKNOWN INDICATION
     Route: 065
     Dates: start: 20030101
  8. ROSUVASTATIN [Concomitant]
     Indication: PRODUCT USED FOR UNKNOWN INDICATION
     Route: 065
     Dates: start: 20061017
  9. OMEPRAZOLE [Concomitant]
     Indication: PRODUCT USED FOR UNKNOWN INDICATION
     Route: 065
     Dates: start: 20100907
  10. HYDRALAZINE [Concomitant]
     Indication: PRODUCT USED FOR UNKNOWN INDICATION
     Route: 065
     Dates: start: 20100910, end: 20130510
  11. ISOSORBIDE MONONITRATE [Concomitant]
     Indication: PRODUCT USED FOR UNKNOWN INDICATION
     Route: 065
     Dates: start: 20100910, end: 20130510
  12. OCUVITE [Concomitant]
     Indication: PRODUCT USED FOR UNKNOWN INDICATION
     Route: 065
     Dates: start: 201101
  13. AQUAPHOR [Concomitant]
     Indication: PRODUCT USED FOR UNKNOWN INDICATION
     Route: 065
     Dates: start: 201101
  14. ALBUTEROL SULFATE [Concomitant]
     Indication: PRODUCT USED FOR UNKNOWN INDICATION
     Route: 065
     Dates: start: 20121107
  15. ALBUTEROL SULFATE [Concomitant]
     Route: 055
     Dates: start: 20130218, end: 20130218
  16. AUGMENTIN [Concomitant]
     Indication: ADVERSE EVENT
     Route: 065
     Dates: start: 20130202, end: 20130203
  17. MUCINEX [Concomitant]
     Indication: ADVERSE EVENT
     Route: 065
     Dates: start: 20130203, end: 20130204
  18. ATROVENT [Concomitant]
     Indication: ADVERSE EVENT
     Route: 065
     Dates: start: 20130203, end: 20130204
  19. ATROVENT [Concomitant]
     Route: 065
     Dates: start: 20130218, end: 20130218
  20. ZITHROMAX [Concomitant]
     Indication: ADVERSE EVENT
     Route: 065
     Dates: start: 20130203, end: 20130209
  21. TESSALON PERLES [Concomitant]
     Indication: ADVERSE EVENT
     Route: 065
     Dates: start: 20130203, end: 20130227
  22. BUDESONIDE [Concomitant]
     Indication: ADVERSE EVENT
     Route: 065
     Dates: start: 20130205, end: 20130209
  23. SODIUM CHLORIDE [Concomitant]
     Indication: ADVERSE EVENT
     Dosage: .9 PERCENT
     Route: 065
     Dates: start: 20130205, end: 20130207
  24. ROBITUSSIN AC [Concomitant]
     Indication: ADVERSE EVENT
     Route: 065
     Dates: start: 20130205, end: 20130403
  25. CEFTRIAXONE [Concomitant]
     Indication: ADVERSE EVENT
     Route: 065
     Dates: start: 20130205, end: 20130209
  26. LASIX [Concomitant]
     Indication: ADVERSE EVENT
     Route: 065
     Dates: start: 20130206, end: 20130206
  27. LASIX [Concomitant]
     Route: 065
     Dates: start: 20130404, end: 20130404
  28. LASIX [Concomitant]
     Route: 065
     Dates: start: 20130509, end: 20130510
  29. KLOR [Concomitant]
     Indication: ADVERSE EVENT
     Route: 065
     Dates: start: 20130207, end: 20130207
  30. MOXIFLOXACIN [Concomitant]
     Indication: ADVERSE EVENT
     Route: 065
     Dates: start: 20130209, end: 20130213
  31. SOLUMEDROL [Concomitant]
     Indication: ADVERSE EVENT
     Route: 065
     Dates: start: 20130218, end: 20130218
  32. MAGNESIUM OXIDE [Concomitant]
     Indication: PRODUCT USED FOR UNKNOWN INDICATION
     Route: 065
     Dates: start: 20130322, end: 20130404
  33. POTASSIUM PHOSPHATE [Concomitant]
     Indication: PRODUCT USED FOR UNKNOWN INDICATION
     Route: 065
     Dates: start: 20130322, end: 20130404
  34. PACKED RED BLOOD CELLS [Concomitant]
     Indication: PRODUCT USED FOR UNKNOWN INDICATION
     Route: 065
     Dates: start: 20130404, end: 20130404
  35. PREDNISONE [Concomitant]
     Indication: ADVERSE EVENT
     Route: 065
     Dates: start: 20130219, end: 20130221
  36. ACYCLOVIR [Concomitant]
     Indication: PRODUCT USED FOR UNKNOWN INDICATION
     Route: 065
     Dates: start: 20130404, end: 20130504
  37. PLATELETS [Concomitant]
     Indication: ADVERSE EVENT
     Route: 065
     Dates: start: 20130509, end: 20130509
  38. CARVEDILOL [Concomitant]
     Indication: ADVERSE EVENT
     Route: 065
     Dates: start: 20130510
  39. LISINOPRIL [Concomitant]
     Indication: ADVERSE EVENT
     Route: 065
     Dates: start: 20130510
  40. LIPITOR [Concomitant]
     Indication: ADVERSE EVENT
     Route: 065
     Dates: start: 20130510, end: 20130511
  41. POTASSIUM CHLORIDE [Concomitant]
     Indication: ADVERSE EVENT
     Route: 065
     Dates: start: 20130510, end: 20130512
  42. MAGNESIUM CHLORIDE [Concomitant]
     Indication: ADVERSE EVENT
     Route: 065
     Dates: start: 20130510, end: 20130512
  43. TYLENOL [Concomitant]
     Indication: ADVERSE EVENT
     Route: 065
     Dates: start: 20130512, end: 20130512

REACTIONS (1)
  - Basal cell carcinoma [Recovered/Resolved]
